FAERS Safety Report 19150781 (Version 2)
Quarter: 2021Q2

REPORT INFORMATION
  Report Type: Spontaneous
  Country: US (occurrence: US)
  Receive Date: 20210419
  Receipt Date: 20210422
  Transmission Date: 20210717
  Serious: Yes (Other)
  Sender: FDA-Public Use
  Company Number: US-SA-2021SA103878

PATIENT
  Age: 70 Year
  Sex: Male
  Weight: 77.3 kg

DRUGS (2)
  1. THYMOGLOBULIN [Suspect]
     Active Substance: LAPINE T-LYMPHOCYTE IMMUNE GLOBULIN
     Indication: ALLOGENIC STEM CELL TRANSPLANTATION
     Dosage: 225 MG, QD
     Route: 042
     Dates: start: 20210228, end: 20210302
  2. THYMOGLOBULIN [Suspect]
     Active Substance: LAPINE T-LYMPHOCYTE IMMUNE GLOBULIN
     Dosage: 175 MG, QD
     Route: 042
     Dates: start: 20210316, end: 20210318

REACTIONS (3)
  - Renal impairment [Unknown]
  - Blood creatinine increased [Recovered/Resolved]
  - Acute kidney injury [Unknown]

NARRATIVE: CASE EVENT DATE: 2021
